FAERS Safety Report 24368052 (Version 1)
Quarter: 2024Q3

REPORT INFORMATION
  Report Type: Spontaneous
  Country: CN (occurrence: CN)
  Receive Date: 20240926
  Receipt Date: 20240926
  Transmission Date: 20241016
  Serious: Yes (Life-Threatening, Other)
  Sender: SANOFI AVENTIS
  Company Number: CN-SA-2024SA276902

PATIENT
  Age: 50 Year
  Sex: Female
  Weight: 46 kg

DRUGS (2)
  1. OXALIPLATIN [Suspect]
     Active Substance: OXALIPLATIN
     Indication: Gastric cancer
     Dosage: 50 MG, 1X
     Route: 041
     Dates: start: 20240812, end: 20240812
  2. DEXTROSE [Concomitant]
     Active Substance: DEXTROSE\DEXTROSE MONOHYDRATE
     Indication: Vehicle solution use
     Dosage: 250 ML, 1X
     Route: 041
     Dates: start: 20240812, end: 20240812

REACTIONS (3)
  - Near death experience [Recovered/Resolved]
  - Vomiting [Recovering/Resolving]
  - Agitation [Recovered/Resolved]

NARRATIVE: CASE EVENT DATE: 20240812
